FAERS Safety Report 21551582 (Version 1)
Quarter: 2022Q4

REPORT INFORMATION
  Report Type: Spontaneous
  Country: US (occurrence: US)
  Receive Date: 20221103
  Receipt Date: 20221103
  Transmission Date: 20230113
  Serious: No
  Sender: FDA-Public Use
  Company Number: US-PADAGIS-2022PAD00842

PATIENT

DRUGS (2)
  1. TRETINOIN [Suspect]
     Active Substance: TRETINOIN
     Indication: Skin disorder
     Dosage: QD
     Route: 061
     Dates: start: 20220715, end: 20221013
  2. TRETINOIN [Suspect]
     Active Substance: TRETINOIN
     Indication: Hyperhidrosis

REACTIONS (4)
  - Application site erythema [Not Recovered/Not Resolved]
  - Skin exfoliation [Recovered/Resolved]
  - Application site discolouration [Not Recovered/Not Resolved]
  - Product use in unapproved indication [Unknown]

NARRATIVE: CASE EVENT DATE: 20220701
